FAERS Safety Report 6426027-6 (Version None)
Quarter: 2009Q4

REPORT INFORMATION
  Report Type: 
  Country: None (occurrence: None)
  Receive Date: 20091104
  Receipt Date: 20091026
  Transmission Date: 20100525
  Serious: Yes (Other)
  Sender: FDA-Public Use
  Company Number: GB-RANBAXY-2009RR-28831

PATIENT
  Age: 82 Year
  Sex: Female

DRUGS (2)
  1. CLARITHROMYCIN [Suspect]
     Dosage: UNK
     Route: 048
     Dates: start: 20091009
  2. FLUMEL [Concomitant]

REACTIONS (1)
  - URINARY RETENTION [None]
